FAERS Safety Report 4990435-0 (Version None)
Quarter: 2006Q2

REPORT INFORMATION
  Report Type: 
  Country: None (occurrence: None)
  Receive Date: 20060427
  Receipt Date: 20060411
  Transmission Date: 20061013
  Serious: Yes (Disabling)
  Sender: FDA-Public Use
  Company Number: 2005-02034

PATIENT
  Age: 69 Year
  Sex: Male

DRUGS (27)
  1. VELCADE [Suspect]
     Indication: LYMPHOMA
     Dosage: 1.50 MG/M2
     Dates: start: 20050726, end: 20050916
  2. LIPITOR [Suspect]
     Dates: end: 20050916
  3. RITUXAN [Suspect]
     Dosage: 375.00 MG/M2
     Dates: start: 20050816, end: 20050913
  4. COREG [Suspect]
  5. SYNTHROID [Concomitant]
  6. PROSCAR [Concomitant]
  7. PATANOL [Concomitant]
  8. ZYRTEC [Concomitant]
  9. DIOVAN [Concomitant]
  10. CENTRUM SILVER (ASCORBIC ACID, TOCOPHERYL ACETATE, CALCIUM, ZINC, MINE [Concomitant]
  11. VITAMIN E  ALIUD PHARMA (TOCOPHEROL, VEGETABLE OIL) [Concomitant]
  12. ASCORBIC ACID [Concomitant]
  13. CALCIUM COMPOUNDS [Concomitant]
  14. VITAMIN B6 [Concomitant]
  15. ASPIRIN (ACETLYSALICYLIC ACID) [Concomitant]
  16. VITAMIN B6 [Concomitant]
  17. PEPCID AC [Concomitant]
  18. TYLENOL [Concomitant]
  19. BENADRYL   PFIZER WARNER-LAMBERT (DIPHENHYDRAMINE HYDROCHLORIDE) [Concomitant]
  20. ZOFRAN [Concomitant]
  21. VISTARIL (HYDROXYZINE EMBONATE) [Concomitant]
  22. COLACE (DOCUSATE SODIUM) [Concomitant]
  23. ARISTOCORT TOPICAL OINTMENT (TRIAMCINOLONE ACETONIDE) [Concomitant]
  24. OXYCODONE AND ASPIRIN (OXYCODONE TEREPHTHALATE, ACETYLSALICYLIC ACID, [Concomitant]
  25. OXYCODONE (OXYCODONE) [Concomitant]
  26. COENZYME Q10 [Concomitant]
  27. CELEBREX [Concomitant]

REACTIONS (8)
  - BLOOD CREATINE PHOSPHOKINASE INCREASED [None]
  - DRUG INTERACTION [None]
  - MYALGIA [None]
  - MYOPATHY TOXIC [None]
  - MYOSITIS [None]
  - PAIN IN EXTREMITY [None]
  - PERIPHERAL MOTOR NEUROPATHY [None]
  - PERIPHERAL SENSORY NEUROPATHY [None]
